FAERS Safety Report 20482614 (Version 1)
Quarter: 2022Q1

REPORT INFORMATION
  Report Type: Other
  Country: US (occurrence: None)
  Receive Date: 20220217
  Receipt Date: 20220217
  Transmission Date: 20220423
  Serious: Yes (Death)
  Sender: FDA-Public Use
  Company Number: US-ROCHE-2503824

PATIENT
  Sex: Female

DRUGS (12)
  1. OCREVUS [Suspect]
     Active Substance: OCRELIZUMAB
     Indication: Relapsing-remitting multiple sclerosis
     Dosage: ONGOING: YES, /JUN/2018, 25/JAN/2019: 300 MG DAY 1 AND DAY 15
     Route: 042
     Dates: start: 20180611
  2. BENADRYL [Concomitant]
     Active Substance: DIPHENHYDRAMINE HYDROCHLORIDE
  3. GABAPENTIN [Concomitant]
     Active Substance: GABAPENTIN
  4. METHYLPREDNISOLONE [Concomitant]
     Active Substance: METHYLPREDNISOLONE
  5. IBUPROFEN [Concomitant]
     Active Substance: IBUPROFEN
  6. OXYBUTYNIN [Concomitant]
     Active Substance: OXYBUTYNIN
  7. ACETAMINOPHEN [Concomitant]
     Active Substance: ACETAMINOPHEN
  8. METHYLPREDNISOLONE [Concomitant]
     Active Substance: METHYLPREDNISOLONE
  9. IBUPROFEN [Concomitant]
     Active Substance: IBUPROFEN
  10. SIMVASTATIN [Concomitant]
     Active Substance: SIMVASTATIN
  11. FUROSEMIDE [Concomitant]
     Active Substance: FUROSEMIDE
  12. BACLOFEN [Concomitant]
     Active Substance: BACLOFEN

REACTIONS (7)
  - Weight increased [Not Recovered/Not Resolved]
  - Oedema peripheral [Not Recovered/Not Resolved]
  - Oedema [Not Recovered/Not Resolved]
  - Throat irritation [Not Recovered/Not Resolved]
  - Off label use [Unknown]
  - Sepsis [Fatal]
  - Cardiac failure [Fatal]
